FAERS Safety Report 8587725-1 (Version None)
Quarter: 2012Q3

REPORT INFORMATION
  Report Type: 
  Country: None (occurrence: None)
  Receive Date: 20120813
  Receipt Date: 20120808
  Transmission Date: 20120928
  Serious: Yes (Other)
  Sender: FDA-Public Use
  Company Number: US-AMGEN-USASP2012049820

PATIENT

DRUGS (2)
  1. ENBREL [Suspect]
     Dosage: UNK
     Route: 063
  2. CALCIUM [Concomitant]
     Dosage: UNK

REACTIONS (2)
  - HYPERMETROPIA [None]
  - EXPOSURE DURING BREAST FEEDING [None]
